FAERS Safety Report 9018927 (Version 1)
Quarter: 2013Q1

REPORT INFORMATION
  Report Type: Spontaneous
  Country: US (occurrence: US)
  Receive Date: 20130118
  Receipt Date: 20130118
  Transmission Date: 20140127
  Serious: Yes (Hospitalization, Other)
  Sender: FDA-Public Use
  Company Number: CHPA2013US001140

PATIENT
  Age: 70 Year
  Sex: Female

DRUGS (5)
  1. EXCEDRIN MIGRAINE [Suspect]
     Indication: HEADACHE
     Dosage: UNK, AS NEEDED
     Route: 048
  2. EXCEDRIN MIGRAINE [Suspect]
     Indication: HEADACHE
     Dosage: UNK, AS NEEDED
  3. PERCOCET [Suspect]
     Dosage: UNK, UNK
  4. VICODIN [Concomitant]
  5. BAYER ASPIRIN [Concomitant]

REACTIONS (7)
  - Coma [Recovered/Resolved]
  - Aneurysm [Recovered/Resolved]
  - Hip fracture [Recovered/Resolved]
  - Thrombosis [Recovered/Resolved]
  - Breast cancer [Not Recovered/Not Resolved]
  - Metastases to lymph nodes [Recovered/Resolved]
  - Rash generalised [Recovered/Resolved]
